FAERS Safety Report 4689179-4 (Version None)
Quarter: 2005Q2

REPORT INFORMATION
  Report Type: 
  Country: None (occurrence: None)
  Receive Date: 20050613
  Receipt Date: 20050610
  Transmission Date: 20051028
  Serious: Yes (Life-Threatening)
  Sender: FDA-Public Use
  Company Number: PHRM2005FR01790

PATIENT
  Age: 73 Year
  Sex: Male

DRUGS (3)
  1. TAXOTERE [Suspect]
     Dosage: 50 MG, ONCE/SINGLE
     Dates: start: 20050113, end: 20050113
  2. CORTANCYL [Suspect]
     Dosage: 50 MG, BID
     Route: 048
     Dates: start: 20050112, end: 20050114
  3. ZOMETA [Suspect]
     Dosage: 4 MG, ONCE/SINGLE
     Dates: start: 20050113, end: 20050113

REACTIONS (1)
  - MYOCARDIAL INFARCTION [None]
